FAERS Safety Report 9390019 (Version 1)
Quarter: 2013Q3

REPORT INFORMATION
  Report Type: Spontaneous
  Country: US (occurrence: US)
  Receive Date: 20130708
  Receipt Date: 20130708
  Transmission Date: 20140515
  Serious: No
  Sender: FDA-Public Use
  Company Number: US-AMGEN-USASP2013045630

PATIENT
  Age: 53 Year
  Sex: Female
  Weight: 79.37 kg

DRUGS (13)
  1. ENBREL [Suspect]
     Indication: PRODUCT USED FOR UNKNOWN INDICATION
     Dosage: UNK
     Route: 065
  2. HUMIRA [Suspect]
     Indication: RHEUMATOID ARTHRITIS
     Dosage: 40 MG, 1 IN 2 WEEKS
     Route: 058
     Dates: start: 201302
  3. METHOTREXATE [Concomitant]
     Indication: RHEUMATOID ARTHRITIS
     Dosage: UNK
  4. COREG [Concomitant]
     Indication: HYPERTENSION
     Dosage: UNK
  5. COZAAR [Concomitant]
     Indication: HYPERTENSION
     Dosage: UNK
  6. BENTYL [Concomitant]
     Indication: COLITIS
     Dosage: UNK
  7. FOLIC ACID [Concomitant]
     Indication: SUPPLEMENTATION THERAPY
     Dosage: UNK
  8. PHENERGAN                          /00033002/ [Concomitant]
     Indication: PRODUCT USED FOR UNKNOWN INDICATION
     Dosage: UNK
  9. LOMOTIL [Concomitant]
     Indication: COLITIS
     Dosage: UNK
  10. VALIUM                             /00017001/ [Concomitant]
     Indication: MUSCLE SPASMS
     Dosage: UNK
  11. VALIUM                             /00017001/ [Concomitant]
     Indication: SLEEP DISORDER
  12. PREMARIN [Concomitant]
     Indication: HORMONE REPLACEMENT THERAPY
     Dosage: UNK
  13. LORTAB                             /00607101/ [Concomitant]
     Indication: ARTHRALGIA
     Dosage: UNK

REACTIONS (5)
  - Rheumatoid arthritis [Unknown]
  - Drug effect decreased [Unknown]
  - Injection site warmth [Unknown]
  - Injection site erythema [Unknown]
  - Injection site rash [Unknown]
